FAERS Safety Report 14815462 (Version 3)
Quarter: 2018Q2

REPORT INFORMATION
  Report Type: Spontaneous
  Country: BR (occurrence: BR)
  Receive Date: 20180426
  Receipt Date: 20180530
  Transmission Date: 20180711
  Serious: Yes (Other)
  Sender: FDA-Public Use
  Company Number: BR-PFIZER INC-2018167178

PATIENT
  Sex: Male

DRUGS (2)
  1. CORTEF [Suspect]
     Active Substance: HYDROCORTISONE
     Indication: HYPERADRENALISM
     Dosage: UNK
     Route: 048
     Dates: start: 20140510
  2. CORTEF [Suspect]
     Active Substance: HYDROCORTISONE
     Dosage: 8MG, 3X/DAY
     Route: 048

REACTIONS (2)
  - Drug dependence [Not Recovered/Not Resolved]
  - Malabsorption [Recovered/Resolved]

NARRATIVE: CASE EVENT DATE: 20140510
